FAERS Safety Report 22535343 (Version 1)
Quarter: 2023Q2

REPORT INFORMATION
  Report Type: Other
  Country: CA (occurrence: CA)
  Receive Date: 20230608
  Receipt Date: 20230608
  Transmission Date: 20230722
  Serious: Yes (Other)
  Sender: FDA-Public Use
  Company Number: CA-RECORDATI RARE DISEASE INC.-2023003406

PATIENT

DRUGS (5)
  1. ACTINOMYCIN D [Suspect]
     Active Substance: DACTINOMYCIN
     Indication: Rhabdomyosarcoma
     Dosage: 0.5 MILLIGRAM/KILOGRAM DOSE (WAS GIVEN ON WEEKS 1 AND 7)
  2. VINCRISTINE [Suspect]
     Active Substance: VINCRISTINE
     Indication: Rhabdomyosarcoma
     Dosage: 1.5 MILLIGRAM/SQ. METER/DOSE ON WEEKS 1,4,7,10 AND DAY 8 AND 15 OF EACH CYCLE (MAX DOSE 2 MG)
  3. CYCLOPHOSPHAMIDE [Suspect]
     Active Substance: CYCLOPHOSPHAMIDE
     Indication: Rhabdomyosarcoma
     Dosage: 1.2 MILLIGRAM/SQ. METER WAS GIVEN ON WEEKS 1 AND 7
  4. IRINOTECAN [Suspect]
     Active Substance: IRINOTECAN
     Indication: Rhabdomyosarcoma
     Dosage: 50 MILLIGRAM/SQ. METER FOR 5 DAYS (MAX DOSE 100 MG) ON WEEK 4 AND 10
  5. TEMSIROLIMUS [Suspect]
     Active Substance: TEMSIROLIMUS
     Indication: Rhabdomyosarcoma
     Dosage: 15 MILLIGRAM/SQ. METER, DAY 1,8 AND 15 EACH CYCLE (MAX 25 MG)

REACTIONS (2)
  - Neutropenia [Unknown]
  - Overdose [Recovered/Resolved]
